FAERS Safety Report 8360919-6 (Version None)
Quarter: 2012Q2

REPORT INFORMATION
  Report Type: 
  Country: None (occurrence: None)
  Receive Date: 20120515
  Receipt Date: 20120502
  Transmission Date: 20120825
  Serious: Yes (Hospitalization)
  Sender: FDA-Public Use
  Company Number: NZ-AMGEN-NZLSP2012029922

PATIENT
  Sex: Male

DRUGS (5)
  1. DOXORUBICIN HCL [Concomitant]
  2. PREDNISONE TAB [Concomitant]
  3. NEULASTIM [Suspect]
     Indication: PROPHYLAXIS
  4. VINCRISTINE [Concomitant]
  5. CYCLOPHOSPHAMIDE [Concomitant]

REACTIONS (2)
  - FEBRILE NEUTROPENIA [None]
  - DRUG INEFFECTIVE [None]
